FAERS Safety Report 18359886 (Version 1)
Quarter: 2020Q4

REPORT INFORMATION
  Report Type: Spontaneous
  Country: CA (occurrence: CA)
  Receive Date: 20201008
  Receipt Date: 20201008
  Transmission Date: 20210114
  Serious: Yes (Death)
  Sender: FDA-Public Use
  Company Number: CA-PFIZER INC-2020386961

PATIENT
  Age: 87 Year
  Sex: Male

DRUGS (6)
  1. BISOPROLOL [Suspect]
     Active Substance: BISOPROLOL
  2. VERAPAMIL HCL [Suspect]
     Active Substance: VERAPAMIL HYDROCHLORIDE
  3. MIDAZOLAM. [Suspect]
     Active Substance: MIDAZOLAM
  4. MORPHINE [Suspect]
     Active Substance: MORPHINE
  5. ESCITALOPRAM [Suspect]
     Active Substance: ESCITALOPRAM OXALATE
  6. CITALOPRAM [Suspect]
     Active Substance: CITALOPRAM HYDROBROMIDE

REACTIONS (6)
  - Blood pressure decreased [Fatal]
  - Toxicity to various agents [Fatal]
  - Wrong patient received product [Fatal]
  - Cardiogenic shock [Fatal]
  - Bradycardia [Fatal]
  - Hyperkalaemia [Fatal]
